FAERS Safety Report 4593399-7 (Version None)
Quarter: 2005Q1

REPORT INFORMATION
  Report Type: 
  Country: None (occurrence: None)
  Receive Date: 20050224
  Receipt Date: 20040526
  Transmission Date: 20050727
  Serious: No
  Sender: FDA-Public Use
  Company Number: US-BRISTOL-MYERS SQUIBB COMPANY-12608113

PATIENT
  Age: 44 Year
  Sex: Female
  Weight: 109 kg

DRUGS (1)
  1. EXCEDRIN (MIGRAINE) [Suspect]

REACTIONS (5)
  - DRUG INEFFECTIVE [None]
  - MEDICATION ERROR [None]
  - NAUSEA [None]
  - PAIN [None]
  - VOMITING [None]
